FAERS Safety Report 10760733 (Version 2)
Quarter: 2015Q1

REPORT INFORMATION
  Report Type: Spontaneous
  Country: US (occurrence: None)
  Receive Date: 20150202
  Receipt Date: 20150219
  Transmission Date: 20150721
  Serious: Yes (Other)
  Sender: FDA-Public Use
  Company Number: ADR-2015-00220

PATIENT
  Age: 56 Year
  Sex: Female

DRUGS (4)
  1. FENTANYL INTRATHECAL [Suspect]
     Active Substance: FENTANYL
  2. HYDROMORPHONE [Suspect]
     Active Substance: HYDROMORPHONE
  3. BACLOFEN. [Suspect]
     Active Substance: BACLOFEN
     Indication: SPINAL PAIN
  4. CLONIDINE. [Suspect]
     Active Substance: CLONIDINE

REACTIONS (6)
  - Medical device discomfort [None]
  - Pain [None]
  - Paraesthesia [None]
  - Implant site reaction [None]
  - No therapeutic response [None]
  - Hypoaesthesia [None]

NARRATIVE: CASE EVENT DATE: 20150101
